FAERS Safety Report 22968040 (Version 3)
Quarter: 2023Q4

REPORT INFORMATION
  Report Type: Spontaneous
  Country: IL (occurrence: IL)
  Receive Date: 20230921
  Receipt Date: 20231003
  Transmission Date: 20240109
  Serious: Yes (Hospitalization, Other)
  Sender: FDA-Public Use
  Company Number: IL-002147023-NVSC2023IL199941

PATIENT
  Age: 68 Year
  Sex: Female

DRUGS (6)
  1. HYRIMOZ [Suspect]
     Active Substance: ADALIMUMAB-ADAZ
     Indication: Sarcoidosis
     Dosage: 1 DF, Q2W
     Route: 065
  2. HYRIMOZ [Suspect]
     Active Substance: ADALIMUMAB-ADAZ
     Dosage: 1 DF, Q2W,INJECTION NOT OTHERWISE SPECIFIED
     Route: 065
  3. INSULIN NOS [Concomitant]
     Active Substance: INSULIN NOS
     Indication: Product used for unknown indication
     Dosage: UNK
     Route: 065
  4. Teroza [Concomitant]
     Indication: Product used for unknown indication
     Route: 065
  5. Teroza [Concomitant]
     Indication: Product used for unknown indication
     Route: 065
  6. TOUJEO [Concomitant]
     Active Substance: INSULIN GLARGINE
     Indication: Product used for unknown indication
     Dosage: UNK
     Route: 065

REACTIONS (10)
  - Hypoventilation [Unknown]
  - Neoplasm malignant [Unknown]
  - Diabetes mellitus [Unknown]
  - Pneumonitis [Unknown]
  - Influenza [Unknown]
  - Product storage error [Unknown]
  - Product dose omission issue [Unknown]
  - Pharyngitis [Unknown]
  - Urinary tract infection [Unknown]
  - Pyrexia [Unknown]
